FAERS Safety Report 9810759 (Version 1)
Quarter: 2014Q1

REPORT INFORMATION
  Report Type: Spontaneous
  Country: GB (occurrence: US)
  Receive Date: 20140110
  Receipt Date: 20140110
  Transmission Date: 20141002
  Serious: Yes (Hospitalization)
  Sender: FDA-Public Use
  Company Number: GB-SANOFI-AVENTIS-2012SA090015

PATIENT
  Age: 71 Year
  Sex: Male
  Weight: 110.7 kg

DRUGS (9)
  1. PLAVIX [Suspect]
     Indication: PRODUCT USED FOR UNKNOWN INDICATION
     Route: 065
     Dates: start: 200910, end: 20100703
  2. ASPIRIN [Suspect]
     Indication: PRODUCT USED FOR UNKNOWN INDICATION
     Route: 065
     Dates: start: 1997, end: 20100703
  3. IBUPROFEN [Suspect]
     Indication: PRODUCT USED FOR UNKNOWN INDICATION
     Dosage: FREQUENCY- AS NECESSARY
     Route: 065
     Dates: start: 2000, end: 20100703
  4. BLINDED THERAPY [Concomitant]
     Dates: start: 20100114, end: 20100703
  5. BLINDED THERAPY [Concomitant]
     Dates: start: 20100705
  6. ALLOPURINOL [Concomitant]
     Dates: start: 1970
  7. ATORVASTATIN [Concomitant]
     Dates: start: 20091130
  8. LOPRESSOR [Concomitant]
     Dates: start: 20091030
  9. AMLODIPINE [Concomitant]
     Dates: start: 20091031

REACTIONS (1)
  - Gastrointestinal haemorrhage [Recovered/Resolved]
